FAERS Safety Report 19370780 (Version 2)
Quarter: 2022Q2

REPORT INFORMATION
  Report Type: Spontaneous
  Country: KR (occurrence: KR)
  Receive Date: 20210604
  Receipt Date: 20220408
  Transmission Date: 20220721
  Serious: Yes (Life-Threatening, Hospitalization, Other)
  Sender: FDA-Public Use
  Company Number: KR-LUPIN PHARMACEUTICALS INC.-2021-08429

PATIENT
  Age: 51 Year
  Sex: Male

DRUGS (7)
  1. LORAZEPAM [Suspect]
     Active Substance: LORAZEPAM
     Indication: Aggression
     Dosage: UNK UNK, QD
     Route: 065
  2. OLANZAPINE [Suspect]
     Active Substance: OLANZAPINE
     Indication: Product used for unknown indication
     Dosage: 40 MILLIGRAM (TOTAL FOUR INJECTIONS OF 10 MG EACH, AT 00:50, 01:25, 3:50 AND 11:20 ON POST-OPERATIVE
     Route: 030
  3. HALOPERIDOL [Suspect]
     Active Substance: HALOPERIDOL
     Indication: Product used for unknown indication
     Dosage: 15 MILLIGRAM (TOTAL THREE INJECTIONS OF 5 MG EACH, AT 00:50, 3:50 AND 11:20 ON POST-OPERATIVE DAY 10
     Route: 030
  4. DEXMEDETOMIDINE [Suspect]
     Active Substance: DEXMEDETOMIDINE
     Indication: Sedative therapy
     Dosage: 0.2 MICROGRAM/KILOGRAM (FOR ONE HOUR ON POST-OPERATIVE DAY 10) (ROUTE: INFUSION)
     Route: 065
  5. DEXMEDETOMIDINE [Suspect]
     Active Substance: DEXMEDETOMIDINE
     Dosage: 0.4 MICROGRAM/KILOGRAM (FOR APPROXIMATELY 6:30 HOURS) (ROUTE: INFUSION)
     Route: 065
  6. MEPERIDINE [Suspect]
     Active Substance: MEPERIDINE
     Indication: Product used for unknown indication
     Dosage: 50 MILLIGRAM
     Route: 065
  7. MIDAZOLAM [Suspect]
     Active Substance: MIDAZOLAM
     Indication: Product used for unknown indication
     Dosage: 5 MILLIGRAM
     Route: 065

REACTIONS (6)
  - Bradycardia [Recovering/Resolving]
  - Cardiac arrest [Recovering/Resolving]
  - Ischaemic cardiomyopathy [Recovering/Resolving]
  - Stress cardiomyopathy [Recovering/Resolving]
  - Hypotension [Recovering/Resolving]
  - Drug ineffective [Unknown]
